FAERS Safety Report 5185050-2 (Version None)
Quarter: 2006Q4

REPORT INFORMATION
  Report Type: 
  Country: None (occurrence: None)
  Receive Date: 20061220
  Receipt Date: 20060524
  Transmission Date: 20070319
  Serious: No
  Sender: FDA-Public Use
  Company Number: US-GLAXOSMITHKLINE-A0606762A

PATIENT
  Age: 78 Year
  Sex: Male

DRUGS (2)
  1. NICODERM CQ [Suspect]
     Dosage: 14MG PER DAY
     Route: 062
     Dates: start: 20060523, end: 20060524
  2. NICODERM CQ [Suspect]
     Dosage: 7MG PER DAY
     Route: 062
     Dates: start: 20060714, end: 20060717

REACTIONS (3)
  - ABNORMAL DREAMS [None]
  - ALCOHOL INTOLERANCE [None]
  - NIGHTMARE [None]
